FAERS Safety Report 16551267 (Version 1)
Quarter: 2019Q3

REPORT INFORMATION
  Report Type: Spontaneous
  Country: US (occurrence: US)
  Receive Date: 20190710
  Receipt Date: 20190710
  Transmission Date: 20191004
  Serious: Yes (Hospitalization, Other)
  Sender: FDA-Public Use
  Company Number: US-AUROBINDO-AUR-APL-2019-038067

PATIENT

DRUGS (1)
  1. LINEZOLID INJECTION [Suspect]
     Active Substance: LINEZOLID
     Indication: CELLULITIS
     Dosage: UNK, SINCE PAST MONTH
     Route: 042

REACTIONS (4)
  - Pancytopenia [Unknown]
  - Hypoglycaemia [Unknown]
  - Toxicity to various agents [Recovered/Resolved]
  - Lactic acidosis [Recovered/Resolved]
